FAERS Safety Report 4929321-0 (Version None)
Quarter: 2006Q1

REPORT INFORMATION
  Report Type: 
  Country: None (occurrence: None)
  Receive Date: 20060223
  Receipt Date: 20060201
  Transmission Date: 20060701
  Serious: Yes (Other)
  Sender: FDA-Public Use
  Company Number: US_0509121533

PATIENT
  Age: 47 Year
  Sex: Male
  Weight: 93.4 kg

DRUGS (4)
  1. ZYPREXA [Suspect]
     Indication: BIPOLAR DISORDER
     Dosage: SEE IMAGE
     Route: 048
     Dates: start: 20020601
  2. LEXAPRO /USA/ (ESCITALOPRAM) [Concomitant]
  3. TEGRETOL [Concomitant]
  4. PREVACID [Concomitant]

REACTIONS (12)
  - BLOOD CHOLESTEROL INCREASED [None]
  - BLOOD TRIGLYCERIDES INCREASED [None]
  - CARDIAC FUNCTION TEST ABNORMAL [None]
  - CAROTID ARTERY ATHEROMA [None]
  - CAROTID ARTERY STENOSIS [None]
  - CHEST PAIN [None]
  - CORONARY ARTERY DISEASE [None]
  - DIABETES MELLITUS [None]
  - HAEMORRHOIDS [None]
  - LOWER GASTROINTESTINAL HAEMORRHAGE [None]
  - PANCREATITIS [None]
  - WEIGHT INCREASED [None]
